FAERS Safety Report 5524976-4 (Version None)
Quarter: 2007Q4

REPORT INFORMATION
  Report Type: 
  Country: None (occurrence: None)
  Receive Date: 20071126
  Receipt Date: 20071112
  Transmission Date: 20080405
  Serious: Yes (Death)
  Sender: FDA-Public Use
  Company Number: US-ELI_LILLY_AND_COMPANY-US200711002685

PATIENT
  Age: 45 Year
  Sex: Female

DRUGS (7)
  1. CYMBALTA [Suspect]
  2. ALCOHOL [Concomitant]
  3. CITALOPRAM [Concomitant]
  4. IBUPROFEN [Concomitant]
  5. DEXTROMETHORPHAN HYDROBROMIDE [Concomitant]
  6. DIPHENHYDRAMINE HCL [Concomitant]
  7. CHLORPHENIRAMINE TAB [Concomitant]

REACTIONS (6)
  - ABNORMAL BEHAVIOUR [None]
  - ALCOHOL POISONING [None]
  - ASPHYXIA [None]
  - CONVERSION DISORDER [None]
  - IMPRISONMENT [None]
  - LOSS OF CONSCIOUSNESS [None]
